FAERS Safety Report 6486716-4 (Version None)
Quarter: 2009Q4

REPORT INFORMATION
  Report Type: 
  Country: None (occurrence: None)
  Receive Date: 20091210
  Receipt Date: 20091204
  Transmission Date: 20100525
  Serious: Yes (Other)
  Sender: FDA-Public Use
  Company Number: US-BAYER-200941957NA

PATIENT
  Age: 36 Year
  Sex: Female

DRUGS (1)
  1. DROSPIRENONE AND EHTINYL ESTRADIOL [Suspect]
     Indication: DRUG USE FOR UNKNOWN INDICATION
     Route: 048
     Dates: start: 20080901

REACTIONS (1)
  - DEEP VEIN THROMBOSIS [None]
